FAERS Safety Report 4809244-8 (Version None)
Quarter: 2005Q4

REPORT INFORMATION
  Report Type: 
  Country: None (occurrence: None)
  Receive Date: 20051021
  Receipt Date: 20031110
  Transmission Date: 20060501
  Serious: Yes (Other)
  Sender: FDA-Public Use
  Company Number: GBS031114004

PATIENT
  Age: 36 Year
  Sex: Male

DRUGS (3)
  1. OLANZAPINE [Suspect]
     Indication: MANIA
     Dosage: 15 MG/DAY
  2. CLOZAPINE [Concomitant]
  3. VALPROATE SODIUM [Concomitant]

REACTIONS (1)
  - PLATELET COUNT DECREASED [None]
